FAERS Safety Report 10475484 (Version 1)
Quarter: 2014Q3

REPORT INFORMATION
  Report Type: Spontaneous
  Country: US (occurrence: None)
  Receive Date: 20140924
  Receipt Date: 20140924
  Transmission Date: 20150326
  Serious: Yes (Hospitalization)
  Sender: FDA-Public Use
  Company Number: None

PATIENT
  Age: 66 Year
  Sex: Male
  Weight: 152.3 kg

DRUGS (9)
  1. CA [Concomitant]
  2. PLAVIX [Suspect]
     Active Substance: CLOPIDOGREL BISULFATE
     Indication: CORONARY ARTERY DISEASE
     Route: 048
  3. METOLAZONE. [Concomitant]
     Active Substance: METOLAZONE
  4. ZANTAC [Concomitant]
     Active Substance: RANITIDINE HYDROCHLORIDE
  5. WARFARIN [Suspect]
     Active Substance: WARFARIN
     Indication: ATRIAL FIBRILLATION
     Dosage: CHRONIC 7.5 MG 10 MG TTHSS MF  PO
     Route: 048
  6. TORSEMIDE. [Concomitant]
     Active Substance: TORSEMIDE
  7. ASPIRIN ENTERIC COATED [Suspect]
     Active Substance: ASPIRIN
     Route: 048
  8. AMIODARONE [Concomitant]
     Active Substance: AMIODARONE
  9. COLACE [Concomitant]
     Active Substance: DOCUSATE SODIUM

REACTIONS (3)
  - Gastrointestinal haemorrhage [None]
  - Haemorrhagic anaemia [None]
  - Large intestine polyp [None]

NARRATIVE: CASE EVENT DATE: 20140328
